FAERS Safety Report 9469445 (Version 1)
Quarter: 2013Q3

REPORT INFORMATION
  Report Type: Spontaneous
  Country: AU (occurrence: AU)
  Receive Date: 20130822
  Receipt Date: 20130822
  Transmission Date: 20140515
  Serious: Yes (Hospitalization)
  Sender: FDA-Public Use
  Company Number: AU-009507513-1308AUS007780

PATIENT
  Age: 63 Year
  Sex: Male
  Weight: 72 kg

DRUGS (8)
  1. SIMVASTATIN [Suspect]
     Dosage: 20 MG DAILY
     Route: 048
     Dates: start: 20091018, end: 20111031
  2. FLAXSEED [Concomitant]
  3. MELOXICAM [Concomitant]
  4. MICROLAX (SODIUM CITRATE (+) SODIUM LAURYL SULFOACETATE (+) SORBITOL) [Concomitant]
  5. ACETAMINOPHEN [Concomitant]
  6. ALBUTEROL [Concomitant]
  7. TAMSULOSIN HYDROCHLORIDE [Concomitant]
  8. DEEP HEAT [Concomitant]

REACTIONS (2)
  - Neoplasm prostate [Unknown]
  - Dermatomyositis [Unknown]
